FAERS Safety Report 7331008-4 (Version None)
Quarter: 2011Q1

REPORT INFORMATION
  Report Type: 
  Country: None (occurrence: None)
  Receive Date: 20110225
  Receipt Date: 20110225
  Transmission Date: 20110831
  Serious: No
  Sender: FDA-Public Use
  Company Number: None

PATIENT
  Age: 49 Year
  Sex: Male
  Weight: 92.2 kg

DRUGS (1)
  1. TACROLIMUS [Suspect]
     Indication: PROPHYLAXIS AGAINST TRANSPLANT REJECTION
     Dosage: 3 MG BID PO
     Route: 048
     Dates: start: 20101213, end: 20110131

REACTIONS (4)
  - OEDEMA PERIPHERAL [None]
  - SWELLING [None]
  - HYPERGLYCAEMIC HYPEROSMOLAR NONKETOTIC SYNDROME [None]
  - TOXICITY TO VARIOUS AGENTS [None]
